FAERS Safety Report 8158152-6 (Version None)
Quarter: 2012Q1

REPORT INFORMATION
  Report Type: 
  Country: None (occurrence: None)
  Receive Date: 20120222
  Receipt Date: 20120213
  Transmission Date: 20120608
  Serious: Yes (Hospitalization)
  Sender: FDA-Public Use
  Company Number: PHHO2011CA06612

PATIENT
  Sex: Male
  Weight: 93.3 kg

DRUGS (8)
  1. CYCLOSPORINE [Suspect]
     Dosage: 25 MG, BID
     Route: 048
     Dates: start: 20110922, end: 20111018
  2. CYCLOSPORINE [Suspect]
     Indication: LIVER TRANSPLANT
     Dosage: 75 MG, BID
     Dates: start: 20110208, end: 20110211
  3. RIBAVIRIN [Suspect]
     Dosage: 1000 MG, QD
     Dates: start: 20110629, end: 20110810
  4. RIBAVIRIN [Suspect]
     Dosage: 800 MG, QD
     Dates: start: 20110815, end: 20111018
  5. RIBAVIRIN [Suspect]
     Dosage: UNK
     Dates: start: 20110406
  6. PEGINTERFERON ALFA-2A [Suspect]
     Dosage: 180 MG QWK
     Dates: start: 20110811, end: 20110923
  7. CYCLOSPORINE [Suspect]
     Dosage: 50 MG, BID
     Route: 048
     Dates: start: 20110212, end: 20110921
  8. PEGINTERFERON ALFA-2A [Suspect]
     Dosage: 180 MG QWK
     Dates: start: 20110406, end: 20110803

REACTIONS (3)
  - HEPATIC ENCEPHALOPATHY [None]
  - POLLAKIURIA [None]
  - ENCEPHALOPATHY [None]
